FAERS Safety Report 8446923-8 (Version None)
Quarter: 2012Q2

REPORT INFORMATION
  Report Type: 
  Country: None (occurrence: None)
  Receive Date: 20120613
  Receipt Date: 20120613
  Transmission Date: 20120825
  Serious: Yes (Life-Threatening)
  Sender: FDA-Public Use
  Company Number: None

PATIENT
  Sex: Female
  Weight: 59.8748 kg

DRUGS (1)
  1. BOTOX [Suspect]
     Indication: HEADACHE
     Dosage: EVERY 7 MONTHS, IM
     Route: 030
     Dates: start: 20101006, end: 20120130

REACTIONS (3)
  - TACHYCARDIA [None]
  - PALPITATIONS [None]
  - PANIC ATTACK [None]
